FAERS Safety Report 9530830 (Version 1)
Quarter: 2013Q1

REPORT INFORMATION
  Report Type: Spontaneous
  Country: US (occurrence: None)
  Receive Date: 20130315
  Receipt Date: 20130315
  Transmission Date: 20140127
  Serious: Yes (Hospitalization)
  Sender: FDA-Public Use
  Company Number: US-JNJFOC-20120910397

PATIENT
  Age: 74 Year
  Sex: Male
  Weight: 92.08 kg

DRUGS (4)
  1. MOTRIN IB [Suspect]
     Indication: HEADACHE
     Route: 048
     Dates: start: 1990
  2. ALLOPURINOL (ALLOPURINOL) [Concomitant]
  3. GEMFIBROZIL (GEMFIBROZIL) [Concomitant]
  4. LISINOPRIL (LISINOPRIL) [Concomitant]

REACTIONS (1)
  - Gastric perforation [None]
